FAERS Safety Report 14417397 (Version 2)
Quarter: 2018Q1

REPORT INFORMATION
  Report Type: Spontaneous
  Country: US (occurrence: US)
  Receive Date: 20180122
  Receipt Date: 20180209
  Transmission Date: 20180509
  Serious: No
  Sender: FDA-Public Use
  Company Number: US-009507513-1801USA007100

PATIENT
  Age: 72 Year
  Sex: Female

DRUGS (4)
  1. KEYTRUDA [Suspect]
     Active Substance: PEMBROLIZUMAB
     Indication: HODGKIN^S DISEASE
     Dosage: 3 DOSES
     Dates: start: 2017, end: 2017
  2. SYNTHROID [Concomitant]
     Active Substance: LEVOTHYROXINE SODIUM
     Indication: THYROID DISORDER
     Dosage: 6 SEPARATE DOSES
  3. KEYTRUDA [Suspect]
     Active Substance: PEMBROLIZUMAB
     Dosage: FOURTH DOSE
     Dates: start: 201712
  4. KEYTRUDA [Suspect]
     Active Substance: PEMBROLIZUMAB
     Dosage: SIXTH DOSE

REACTIONS (4)
  - Osteoporosis [Not Recovered/Not Resolved]
  - Swollen tongue [Not Recovered/Not Resolved]
  - Face oedema [Not Recovered/Not Resolved]
  - Rash [Not Recovered/Not Resolved]
